FAERS Safety Report 17409261 (Version 1)
Quarter: 2020Q1

REPORT INFORMATION
  Report Type: Spontaneous
  Country: FR (occurrence: FR)
  Receive Date: 20200212
  Receipt Date: 20200212
  Transmission Date: 20200409
  Serious: Yes (Life-Threatening)
  Sender: FDA-Public Use
  Company Number: FR-MYLANLABS-2020M1015351

PATIENT
  Age: 57 Year
  Sex: Female

DRUGS (6)
  1. DEXAMETHASONE. [Suspect]
     Active Substance: DEXAMETHASONE
     Indication: GENERAL ANAESTHESIA
     Dosage: UNK
     Route: 042
  2. ACUPAN [Suspect]
     Active Substance: NEFOPAM HYDROCHLORIDE
     Indication: GENERAL ANAESTHESIA
     Dosage: UNK
     Route: 042
  3. SUFENTA [Suspect]
     Active Substance: SUFENTANIL CITRATE
     Indication: GENERAL ANAESTHESIA
     Dosage: UNK
     Route: 042
  4. DIPRIVAN [Suspect]
     Active Substance: PROPOFOL
     Indication: GENERAL ANAESTHESIA
     Dosage: UNK
     Route: 042
  5. KETAMINE [Suspect]
     Active Substance: KETAMINE
     Indication: GENERAL ANAESTHESIA
     Dosage: UNK
     Route: 042
  6. NIMBEX [Suspect]
     Active Substance: CISATRACURIUM BESYLATE
     Indication: GENERAL ANAESTHESIA
     Dosage: 2 MILLIGRAM, TOTAL
     Route: 042

REACTIONS (2)
  - Bronchospasm [Recovered/Resolved]
  - Hypotension [Recovered/Resolved]

NARRATIVE: CASE EVENT DATE: 20190108
